FAERS Safety Report 8218393-6 (Version None)
Quarter: 2012Q1

REPORT INFORMATION
  Report Type: 
  Country: None (occurrence: None)
  Receive Date: 20120319
  Receipt Date: 20120315
  Transmission Date: 20120608
  Serious: Yes (Hospitalization)
  Sender: FDA-Public Use
  Company Number: KR-GLAXOSMITHKLINE-B0786438A

PATIENT
  Sex: Male
  Weight: 65.7 kg

DRUGS (8)
  1. TRAMADOL HYDROCHLORIDE AND ACETAMINOPHEN [Concomitant]
     Indication: PAIN
     Dates: start: 20111124, end: 20120102
  2. OXYCONTIN [Concomitant]
     Indication: PAIN
     Dates: start: 20110926
  3. ALBIS [Concomitant]
     Indication: PROPHYLAXIS
     Route: 065
     Dates: start: 20111205, end: 20120102
  4. TALNIFLUMATE [Concomitant]
     Indication: PAIN
     Dates: start: 20111205, end: 20120102
  5. LYRICA [Concomitant]
     Indication: NEUROPATHY PERIPHERAL
     Route: 065
     Dates: start: 20110926, end: 20120102
  6. DEXAMETHASONE [Concomitant]
     Indication: PROPHYLAXIS
     Dates: start: 20111124, end: 20120102
  7. HYCAMTIN [Suspect]
     Indication: SMALL CELL LUNG CANCER STAGE UNSPECIFIED
     Dosage: 4MG CYCLIC
     Route: 048
     Dates: start: 20111124
  8. GASMOTIN [Concomitant]
     Indication: PROPHYLAXIS
     Route: 065
     Dates: start: 20110926

REACTIONS (1)
  - PNEUMONIA [None]
